FAERS Safety Report 5653555-3 (Version None)
Quarter: 2008Q1

REPORT INFORMATION
  Report Type: 
  Country: None (occurrence: None)
  Receive Date: 20080131
  Receipt Date: 20071112
  Transmission Date: 20080703
  Serious: No
  Sender: FDA-Public Use
  Company Number: US200710006305

PATIENT
  Age: 43 Year
  Sex: Female
  Weight: 96.1 kg

DRUGS (5)
  1. BYETTA [Suspect]
     Indication: TYPE 2 DIABETES MELLITUS
     Dosage: 5 UG, 2/D, SUBCUTANEOUS
     Route: 058
     Dates: start: 20071017, end: 20071025
  2. EXENATIDE 5MCG PEN, DISPOSABLE DEVICE [Concomitant]
  3. VICOPROFEN [Concomitant]
  4. HUMULIN 30/70 (INSULIN HUMAN INJECTION, ISOPHANE) [Concomitant]
  5. PREVACID [Concomitant]

REACTIONS (5)
  - CHEST DISCOMFORT [None]
  - DECREASED APPETITE [None]
  - FATIGUE [None]
  - NAUSEA [None]
  - PAIN IN EXTREMITY [None]
